FAERS Safety Report 10138270 (Version 1)
Quarter: 2014Q2

REPORT INFORMATION
  Report Type: Spontaneous
  Country: US (occurrence: US)
  Receive Date: 20140429
  Receipt Date: 20140429
  Transmission Date: 20141212
  Serious: No
  Sender: FDA-Public Use
  Company Number: US-PFIZER INC-2014114506

PATIENT
  Age: 88 Year
  Sex: Female

DRUGS (4)
  1. FLAGYL [Suspect]
     Dosage: UNK
  2. VALIUM [Suspect]
     Dosage: UNK
  3. PENICILLIN NOS [Suspect]
  4. TETRACYCLINE [Suspect]

REACTIONS (1)
  - Drug hypersensitivity [Unknown]
